FAERS Safety Report 6884912-5 (Version None)
Quarter: 2010Q3

REPORT INFORMATION
  Report Type: 
  Country: None (occurrence: None)
  Receive Date: 20100729
  Receipt Date: 20080103
  Transmission Date: 20110219
  Serious: Yes (Death, Hospitalization, Other)
  Sender: FDA-Public Use
  Company Number: US-PFIZER INC-2007044972

PATIENT
  Sex: Male

DRUGS (2)
  1. CELEBREX [Suspect]
     Indication: ARTHRITIS
     Route: 048
     Dates: start: 20000208, end: 20040701
  2. VIOXX [Suspect]
     Route: 048
     Dates: start: 20010208, end: 20040804

REACTIONS (1)
  - MYOCARDIAL INFARCTION [None]
